FAERS Safety Report 4767091-X (Version None)
Quarter: 2005Q3

REPORT INFORMATION
  Report Type: 
  Country: None (occurrence: None)
  Receive Date: 20050908
  Receipt Date: 20050811
  Transmission Date: 20060218
  Serious: Yes (Life-Threatening, Hospitalization)
  Sender: FDA-Public Use
  Company Number: S05-AUS-02778-01

PATIENT
  Age: 53 Year
  Sex: Male
  Weight: 84 kg

DRUGS (9)
  1. LEXAPRO [Suspect]
     Dosage: 10 MG QD PO
     Route: 048
     Dates: start: 20050201, end: 20050101
  2. LEXAPRO [Suspect]
     Dosage: 15 MG QD PO
     Route: 048
     Dates: start: 20050101, end: 20050701
  3. RAMIPRIL [Concomitant]
  4. METOPROLOL [Concomitant]
  5. NORVASC [Concomitant]
  6. ASPIRIN [Concomitant]
  7. CLOPIDOGREL [Concomitant]
  8. ALLOPURINOL [Concomitant]
  9. LIPITOR [Concomitant]

REACTIONS (2)
  - CONVULSION [None]
  - HYPONATRAEMIA [None]
